FAERS Safety Report 7189881-9 (Version None)
Quarter: 2010Q4

REPORT INFORMATION
  Report Type: 
  Country: None (occurrence: None)
  Receive Date: 20101223
  Receipt Date: 20101213
  Transmission Date: 20110411
  Serious: Yes (Hospitalization)
  Sender: FDA-Public Use
  Company Number: US-ELI_LILLY_AND_COMPANY-US201007003668

PATIENT
  Sex: Female

DRUGS (12)
  1. FORTEO [Suspect]
     Indication: OSTEOPOROSIS
     Dosage: 20 UG, DAILY (1/D)
     Route: 065
     Dates: start: 20091015, end: 20100301
  2. FORTEO [Suspect]
     Dosage: 20 UG, DAILY (1/D)
     Route: 065
     Dates: start: 20100423
  3. FORTEO [Suspect]
     Dosage: 20 UG, DAILY (1/D)
     Route: 065
  4. FISH OIL [Concomitant]
     Dosage: UNK, UNKNOWN
     Route: 065
  5. BIO TEARS [Concomitant]
     Dosage: UNK, UNKNOWN
     Route: 065
  6. GLUCOSAMINE + CHONDROITIN [Concomitant]
     Dosage: UNK, UNKNOWN
     Route: 065
  7. VITAMIN D3 [Concomitant]
     Dosage: UNK, UNKNOWN
     Route: 065
  8. MULTI-VITAMIN [Concomitant]
     Dosage: UNK, UNKNOWN
     Route: 065
  9. FOLIC ACID [Concomitant]
     Dosage: UNK, UNKNOWN
     Route: 065
  10. SYNTHROID [Concomitant]
     Dosage: UNK, UNKNOWN
     Route: 065
  11. LISINOPRIL [Concomitant]
     Dosage: UNK, UNKNOWN
     Route: 065
  12. PRILOSEC [Concomitant]
     Dosage: UNK, UNKNOWN
     Route: 065

REACTIONS (9)
  - ABDOMINAL DISTENSION [None]
  - ABDOMINAL HERNIA [None]
  - ABDOMINAL PAIN [None]
  - BLOOD CALCIUM INCREASED [None]
  - DYSPNOEA [None]
  - INTRA-ABDOMINAL HAEMATOMA [None]
  - POST PROCEDURAL HAEMORRHAGE [None]
  - PROCEDURAL PAIN [None]
  - WOUND DRAINAGE [None]
